FAERS Safety Report 4917134-5 (Version None)
Quarter: 2006Q1

REPORT INFORMATION
  Report Type: 
  Country: None (occurrence: None)
  Receive Date: 20060221
  Receipt Date: 20060209
  Transmission Date: 20060701
  Serious: Yes (Disabling)
  Sender: FDA-Public Use
  Company Number: PHBS2006FR02217

PATIENT
  Age: 60 Year
  Sex: Male

DRUGS (3)
  1. CYCLOSPORINE [Suspect]
     Indication: RENAL TRANSPLANT
     Dosage: 100 MG/DAY
  2. PREDNISOLONE [Concomitant]
     Dosage: 5 MG/DAY
  3. PREDNISOLONE [Concomitant]
     Dosage: 20 MG/DAY

REACTIONS (8)
  - AREFLEXIA [None]
  - ASTHENIA [None]
  - CHRONIC INFLAMMATORY DEMYELINATING POLYRADICULONEUROPATHY [None]
  - CSF PROTEIN INCREASED [None]
  - DIFFICULTY IN WALKING [None]
  - MUSCLE ATROPHY [None]
  - PARAESTHESIA [None]
  - SENSORIMOTOR DISORDER [None]
